FAERS Safety Report 16056330 (Version 1)
Quarter: 2019Q2

REPORT INFORMATION
  Report Type: Spontaneous
  Country: US (occurrence: US)
  Receive Date: 20190308
  Receipt Date: 20190308
  Transmission Date: 20190711
  Serious: Yes (Hospitalization)
  Sender: FDA-Public Use
  Company Number: None

PATIENT
  Age: 25 Year
  Sex: Female
  Weight: 67.5 kg

DRUGS (1)
  1. BOTOX [Suspect]
     Active Substance: ONABOTULINUMTOXINA
     Indication: MUSCLE RELAXANT THERAPY
     Dosage: ?          OTHER FREQUENCY:EVERY 4-6 MONTHS;?
     Route: 030
     Dates: start: 20190304, end: 20190304

REACTIONS (10)
  - Tinnitus [None]
  - Headache [None]
  - Hypoacusis [None]
  - Ear pain [None]
  - Injection site discomfort [None]
  - Head discomfort [None]
  - Neck pain [None]
  - Nausea [None]
  - Joint range of motion decreased [None]
  - Asthenia [None]

NARRATIVE: CASE EVENT DATE: 20190307
